FAERS Safety Report 5664768-9 (Version None)
Quarter: 2008Q1

REPORT INFORMATION
  Report Type: 
  Country: None (occurrence: None)
  Receive Date: 20080312
  Receipt Date: 20080226
  Transmission Date: 20080703
  Serious: Yes (Life-Threatening, Hospitalization)
  Sender: FDA-Public Use
  Company Number: ABTXA-08-0059

PATIENT
  Age: 61 Year
  Sex: Female
  Weight: 84.8226 kg

DRUGS (11)
  1. ABRAXANE [Suspect]
     Indication: BREAST CANCER METASTATIC
     Dosage: LAST DOSE (200 MG) PRIOR TO SAE ON 05-FEB-2008 (CYCLE 5) (WEEKLY, 3WKS ON THEN 1 WK. OFF), INTRAVENO
     Route: 042
     Dates: start: 20071227, end: 20080205
  2. KYTRIL [Concomitant]
  3. DECADRON [Concomitant]
  4. TOPROL [Concomitant]
  5. ACIPHEX [Concomitant]
  6. LASIX [Concomitant]
  7. GABAPENTIN [Concomitant]
  8. CYMBALTA [Concomitant]
  9. ZAROXOLYN [Concomitant]
  10. LISINOPRIL [Concomitant]
  11. NEUPOGEN [Concomitant]

REACTIONS (8)
  - BLOOD SODIUM DECREASED [None]
  - COLITIS ISCHAEMIC [None]
  - ENDOTOXIC SHOCK [None]
  - METASTASES TO LUNG [None]
  - NEUTROPENIA [None]
  - PNEUMONIA [None]
  - RENAL FAILURE ACUTE [None]
  - SEPTIC SHOCK [None]
